FAERS Safety Report 12121867 (Version 1)
Quarter: 2016Q1

REPORT INFORMATION
  Report Type: Report from Study
  Country: US (occurrence: US)
  Receive Date: 20160226
  Receipt Date: 20160226
  Transmission Date: 20160526
  Serious: Yes (Hospitalization)
  Sender: FDA-Public Use
  Company Number: US-BIOGEN-2016BI00194011

PATIENT
  Sex: Female

DRUGS (1)
  1. TYSABRI [Suspect]
     Active Substance: NATALIZUMAB
     Indication: MULTIPLE SCLEROSIS
     Route: 065
     Dates: start: 20140918, end: 20150331

REACTIONS (8)
  - Uterine leiomyoma [Not Recovered/Not Resolved]
  - Multiple sclerosis relapse [Not Recovered/Not Resolved]
  - Fall [Recovered/Resolved]
  - Bacterial infection [Recovered/Resolved]
  - Adverse reaction [Recovered/Resolved]
  - Secretion discharge [Recovered/Resolved]
  - Viral infection [Recovered/Resolved]
  - Decreased immune responsiveness [Not Recovered/Not Resolved]
